FAERS Safety Report 9359585 (Version 1)
Quarter: 2013Q2

REPORT INFORMATION
  Report Type: Spontaneous
  Country: US (occurrence: US)
  Receive Date: 20130620
  Receipt Date: 20130620
  Transmission Date: 20140414
  Serious: No
  Sender: FDA-Public Use
  Company Number: US-US-EMD SERONO, INC.-7068680

PATIENT
  Age: 52 Year
  Sex: Female

DRUGS (2)
  1. REBIF [Suspect]
     Indication: MULTIPLE SCLEROSIS
     Route: 058
     Dates: start: 20090314
  2. ACETAMINOPHEN [Concomitant]
     Indication: PREMEDICATION

REACTIONS (7)
  - Heart rate increased [Recovered/Resolved]
  - Dizziness [Unknown]
  - Tremor [Unknown]
  - Erythema [Unknown]
  - Feeling hot [Unknown]
  - Vision blurred [Unknown]
  - Hyperhidrosis [Unknown]
